FAERS Safety Report 8104996-6 (Version None)
Quarter: 2012Q1

REPORT INFORMATION
  Report Type: 
  Country: None (occurrence: None)
  Receive Date: 20120201
  Receipt Date: 20120123
  Transmission Date: 20120608
  Serious: Yes (Death, Life-Threatening)
  Sender: FDA-Public Use
  Company Number: JP-GLAXOSMITHKLINE-B0747931A

PATIENT
  Sex: Female
  Weight: 91 kg

DRUGS (4)
  1. TRANSFUSION [Concomitant]
     Dates: start: 20110523, end: 20110629
  2. PACKED RED CELL [Concomitant]
  3. HYCAMTIN [Suspect]
     Indication: OVARIAN CANCER RECURRENT
     Dosage: 2.5MG PER DAY
     Route: 042
     Dates: start: 20110516, end: 20110616
  4. PRESERVED BLOOD [Concomitant]

REACTIONS (5)
  - PLATELET COUNT DECREASED [None]
  - BONE MARROW FAILURE [None]
  - WHITE BLOOD CELL COUNT DECREASED [None]
  - RESPIRATORY FAILURE [None]
  - CONDITION AGGRAVATED [None]
